FAERS Safety Report 19809360 (Version 2)
Quarter: 2021Q3

REPORT INFORMATION
  Report Type: Spontaneous
  Country: US (occurrence: US)
  Receive Date: 20210908
  Receipt Date: 20210911
  Transmission Date: 20211014
  Serious: Yes (Other)
  Sender: FDA-Public Use
  Company Number: US-PERRIGO-21US011943

PATIENT
  Age: 53 Year
  Sex: Female
  Weight: 93.88 kg

DRUGS (1)
  1. GUAIFENESIN?DEXTROMETHORPHAN HYDROBROMIDE [Suspect]
     Active Substance: DEXTROMETHORPHAN HYDROBROMIDE\GUAIFENESIN
     Indication: COUGH
     Dosage: 1 TABLET, TWICE IN 12 HOURS
     Route: 048
     Dates: start: 20210823, end: 20210823

REACTIONS (7)
  - Hypersensitivity [Recovering/Resolving]
  - Pharyngeal swelling [Recovered/Resolved]
  - Pruritus [Recovering/Resolving]
  - Periorbital oedema [Recovered/Resolved]
  - Dyspnoea [Recovered/Resolved]
  - Swelling face [Recovered/Resolved]
  - Urticaria [Recovering/Resolving]

NARRATIVE: CASE EVENT DATE: 20210823
